FAERS Safety Report 13188323 (Version 1)
Quarter: 2017Q1

REPORT INFORMATION
  Report Type: Spontaneous
  Country: US (occurrence: US)
  Receive Date: 20170206
  Receipt Date: 20170206
  Transmission Date: 20170428
  Serious: Yes (Other)
  Sender: FDA-Public Use
  Company Number: US-BAYER-2017-022727

PATIENT
  Age: 52 Year
  Sex: Female

DRUGS (1)
  1. GADAVIST [Suspect]
     Active Substance: GADOBUTROL
     Indication: NUCLEAR MAGNETIC RESONANCE IMAGING SPINAL
     Dosage: UNK, ONCE
     Dates: start: 20170203, end: 20170203

REACTIONS (3)
  - Vomiting [Recovered/Resolved]
  - Pruritus [None]
  - Cough [Recovered/Resolved]

NARRATIVE: CASE EVENT DATE: 20170203
